FAERS Safety Report 10643051 (Version 1)
Quarter: 2014Q4

REPORT INFORMATION
  Report Type: Spontaneous
  Country: US (occurrence: None)
  Receive Date: 20141209
  Receipt Date: 20141209
  Transmission Date: 20150529
  Serious: Yes (Other)
  Sender: FDA-Public Use
  Company Number: None

PATIENT
  Age: 40 Year
  Sex: Female
  Weight: 108.86 kg

DRUGS (1)
  1. VANCOMYCIN [Suspect]
     Active Substance: VANCOMYCIN
     Indication: BREAST CELLULITIS
     Dosage: 150 ML /HR OVER 2 HOURS , IV.
     Route: 042
     Dates: start: 20141121

REACTIONS (3)
  - Peripheral swelling [None]
  - Local swelling [None]
  - Pruritus [None]

NARRATIVE: CASE EVENT DATE: 20141112
